FAERS Safety Report 23712042 (Version 1)
Quarter: 2024Q2

REPORT INFORMATION
  Report Type: Spontaneous
  Country: US (occurrence: US)
  Receive Date: 20240405
  Receipt Date: 20240405
  Transmission Date: 20240716
  Serious: Yes (Other)
  Sender: FDA-Public Use
  Company Number: US-DRL-USA-LIT/USA/24/0005265

PATIENT
  Age: 55 Year
  Sex: Male

DRUGS (9)
  1. SIROLIMUS [Suspect]
     Active Substance: SIROLIMUS
     Indication: Cytopenia
  2. SIROLIMUS [Suspect]
     Active Substance: SIROLIMUS
     Indication: Graft versus host disease
  3. SIROLIMUS [Suspect]
     Active Substance: SIROLIMUS
     Indication: Myelosuppression
  4. PREDNISONE [Suspect]
     Active Substance: PREDNISONE
     Indication: Cytopenia
  5. PREDNISONE [Suspect]
     Active Substance: PREDNISONE
     Indication: Graft versus host disease
  6. PREDNISONE [Suspect]
     Active Substance: PREDNISONE
     Indication: Myelosuppression
  7. BASILIXIMAB [Suspect]
     Active Substance: BASILIXIMAB
     Indication: Cytopenia
     Dosage: DAY 1, 4, 7, 14, 21,28  FOLLOWED BY ALTERNATE WEEK AND THEN MONTHLY DOSING FOR 2-9 MONTHS
  8. BASILIXIMAB [Suspect]
     Active Substance: BASILIXIMAB
     Indication: Graft versus host disease
  9. BASILIXIMAB [Suspect]
     Active Substance: BASILIXIMAB
     Indication: Myelosuppression

REACTIONS (2)
  - Pneumonia cytomegaloviral [Recovering/Resolving]
  - Drug ineffective [Unknown]
